FAERS Safety Report 5701846-X (Version None)
Quarter: 2008Q2

REPORT INFORMATION
  Report Type: 
  Country: None (occurrence: None)
  Receive Date: 20080408
  Receipt Date: 20080401
  Transmission Date: 20081010
  Serious: Yes (Death, Other)
  Sender: FDA-Public Use
  Company Number: 056-21880-08040277

PATIENT

DRUGS (1)
  1. REVLIMID [Suspect]
     Indication: MYELODYSPLASTIC SYNDROME
     Dosage: 15 MG, DAILY X21 DAYS Q28D INCR. TO 15 MG/D, ORAL; 5 MG, 1 IN 1 D, ORAL; 5 MG, 1 IN 2 D, ORAL
     Route: 048

REACTIONS (9)
  - CARDIAC FAILURE [None]
  - CEREBRAL HAEMORRHAGE [None]
  - COLITIS ISCHAEMIC [None]
  - DISEASE PROGRESSION [None]
  - NEUTROPENIA [None]
  - PULMONARY EMBOLISM [None]
  - RASH [None]
  - SEPSIS [None]
  - THROMBOCYTOPENIA [None]
